FAERS Safety Report 16251555 (Version 1)
Quarter: 2019Q2

REPORT INFORMATION
  Report Type: Spontaneous
  Country: DE (occurrence: DE)
  Receive Date: 20190429
  Receipt Date: 20190429
  Transmission Date: 20190711
  Serious: Yes (Other)
  Sender: FDA-Public Use
  Company Number: DE-OTSUKA-2019_015190

PATIENT
  Age: 11 Year
  Sex: Male

DRUGS (2)
  1. CYCLOPHOSPHAMID [Suspect]
     Active Substance: CYCLOPHOSPHAMIDE
     Indication: BONE MARROW CONDITIONING REGIMEN
     Dosage: 120 MG/KG, UNKNOWN
     Route: 065
  2. BUSULFAN. [Suspect]
     Active Substance: BUSULFAN
     Indication: BONE MARROW CONDITIONING REGIMEN
     Dosage: 16 MG/KG, UNKNOWN
     Route: 065

REACTIONS (7)
  - Deafness neurosensory [Unknown]
  - Seizure [Unknown]
  - Cognitive disorder [Unknown]
  - Muscle contractions involuntary [Unknown]
  - Nervous system disorder [Unknown]
  - Cortical dysplasia [Unknown]
  - Cataract [Unknown]
